FAERS Safety Report 15371549 (Version 2)
Quarter: 2018Q3

REPORT INFORMATION
  Report Type: Spontaneous
  Country: CN (occurrence: CN)
  Receive Date: 20180911
  Receipt Date: 20180911
  Transmission Date: 20181010
  Serious: Yes (Hospitalization, Other)
  Sender: FDA-Public Use
  Company Number: PHHY2018CN065578

PATIENT
  Age: 57 Year
  Sex: Male

DRUGS (21)
  1. GLIVEC [Suspect]
     Active Substance: IMATINIB MESYLATE
     Indication: GASTROINTESTINAL STROMAL TUMOUR
     Dosage: 4 DF, QD
     Route: 048
     Dates: start: 20180519, end: 20180714
  2. VANCOMYCIN HYDROCHLORIDE. [Concomitant]
     Active Substance: VANCOMYCIN HYDROCHLORIDE
     Indication: PRODUCT USED FOR UNKNOWN INDICATION
     Dosage: 0.5 G, (/BOTTLE)
     Route: 065
  3. IMIMINE [Concomitant]
     Indication: PRODUCT USED FOR UNKNOWN INDICATION
     Dosage: 500 MG, (PER BOTTLE)
     Route: 065
  4. PREDNISONE ACETATE [Concomitant]
     Active Substance: PREDNISONE ACETATE
     Indication: PRODUCT USED FOR UNKNOWN INDICATION
     Dosage: 5 MG, (100 TAB/BOTTLE)
     Route: 065
  5. CEFUROXIME AXETIL. [Concomitant]
     Active Substance: CEFUROXIME AXETIL
     Indication: PRODUCT USED FOR UNKNOWN INDICATION
     Route: 065
  6. LIDOCAINE HYDROCHLORIDE. [Concomitant]
     Active Substance: LIDOCAINE HYDROCHLORIDE
     Indication: PRODUCT USED FOR UNKNOWN INDICATION
     Dosage: 0.05 G/INJECTION
     Route: 065
  7. AMBROXOL HYDROCHLORIDE [Concomitant]
     Active Substance: AMBROXOL HYDROCHLORIDE
     Indication: PRODUCT USED FOR UNKNOWN INDICATION
     Dosage: 30 MG, (1 BOTTLE/BOTTLE)
     Route: 065
  8. METHYLPREDNISOLONE SODIUM SUCCINATE. [Concomitant]
     Active Substance: METHYLPREDNISOLONE SODIUM SUCCINATE
     Indication: PRODUCT USED FOR UNKNOWN INDICATION
     Dosage: 40 MG, (PER BOTTLE) 22
     Route: 065
  9. COMPOUND AMINO ACID (18AA) [Concomitant]
     Indication: PRODUCT USED FOR UNKNOWN INDICATION
     Dosage: (200 ML 20.6/BOTTLE)
     Route: 065
  10. LEVOFLOXACIN HYDROCHLORIDE [Concomitant]
     Active Substance: LEVOFLOXACIN HYDROCHLORIDE
     Indication: PRODUCT USED FOR UNKNOWN INDICATION
     Route: 065
  11. TYLENOL [Concomitant]
     Active Substance: ACETAMINOPHEN
     Indication: PRODUCT USED FOR UNKNOWN INDICATION
     Route: 065
  12. NEXIUM [Concomitant]
     Active Substance: ESOMEPRAZOLE MAGNESIUM
     Indication: PRODUCT USED FOR UNKNOWN INDICATION
     Route: 065
  13. MOXIFLOXACIN HYDROCHLORIDE. [Concomitant]
     Active Substance: MOXIFLOXACIN HYDROCHLORIDE
     Indication: PRODUCT USED FOR UNKNOWN INDICATION
     Dosage: 0.4 G, (3 TAB/BOX)
     Route: 065
  14. FUROSEMIDE. [Concomitant]
     Active Substance: FUROSEMIDE
     Indication: PRODUCT USED FOR UNKNOWN INDICATION
     Dosage: 2 ML, (10 INJECTIONS /BOX)
     Route: 065
  15. ACETYL CYSTEINE SENJU [Concomitant]
     Active Substance: ACETYLCYSTEINE
     Dosage: 0.6 (6 CAP PER BOX)
     Route: 065
  16. PENICILLIN SODIUM [Concomitant]
     Active Substance: PENICILLIN G SODIUM
     Indication: PRODUCT USED FOR UNKNOWN INDICATION
     Dosage: 80000 U/BOTTLE
     Route: 065
  17. DOMPERIDONE [Concomitant]
     Active Substance: DOMPERIDONE
     Indication: PRODUCT USED FOR UNKNOWN INDICATION
     Dosage: 10 MG, (42 TAB/BOX)
     Route: 065
  18. TETRACAINE HYDROCHLORIDE. [Concomitant]
     Active Substance: TETRACAINE HYDROCHLORIDE
     Indication: PRODUCT USED FOR UNKNOWN INDICATION
     Route: 065
  19. ACETYL CYSTEINE SENJU [Concomitant]
     Active Substance: ACETYLCYSTEINE
     Indication: PRODUCT USED FOR UNKNOWN INDICATION
     Dosage: 300 MG, (5 INJECTIONS PER BOX)
     Route: 065
  20. LANSOPRAZOLE. [Concomitant]
     Active Substance: LANSOPRAZOLE
     Indication: PRODUCT USED FOR UNKNOWN INDICATION
     Dosage: 30 MG, UNK
     Route: 065
  21. PIPERACILLIN AND TAZOBACTAM [Concomitant]
     Active Substance: PIPERACILLIN SODIUM\TAZOBACTAM SODIUM
     Indication: PRODUCT USED FOR UNKNOWN INDICATION
     Dosage: (4:1) (0.625 1 INJECTION/BOX)
     Route: 065

REACTIONS (34)
  - Hypoxia [Recovering/Resolving]
  - Interstitial lung disease [Not Recovered/Not Resolved]
  - Prothrombin level abnormal [Unknown]
  - Blood immunoglobulin M abnormal [Unknown]
  - Asthma [Recovering/Resolving]
  - Activated partial thromboplastin time abnormal [Unknown]
  - Thrombin time abnormal [Unknown]
  - High density lipoprotein abnormal [Unknown]
  - Blood immunoglobulin A abnormal [Unknown]
  - Malaise [Recovering/Resolving]
  - Bronchoscopy abnormal [Unknown]
  - Asthenia [Unknown]
  - Nausea [Unknown]
  - Productive cough [Recovering/Resolving]
  - Stool analysis abnormal [Unknown]
  - Liver function test abnormal [Unknown]
  - Procalcitonin abnormal [Unknown]
  - Blood urea abnormal [Unknown]
  - Blood bicarbonate abnormal [Unknown]
  - Low density lipoprotein abnormal [Unknown]
  - Burning sensation [Not Recovered/Not Resolved]
  - Gastrooesophageal reflux disease [Not Recovered/Not Resolved]
  - Blood fibrinogen abnormal [Unknown]
  - Glycosylated haemoglobin increased [Unknown]
  - Cytology abnormal [Unknown]
  - C-reactive protein abnormal [Unknown]
  - Blood sodium abnormal [Unknown]
  - Blood immunoglobulin E abnormal [Unknown]
  - Dyspnoea [Recovering/Resolving]
  - Pneumonia aspiration [Unknown]
  - Blood potassium abnormal [Unknown]
  - Computerised tomogram abnormal [Unknown]
  - Prothrombin time abnormal [Unknown]
  - Red blood cell sedimentation rate [Unknown]

NARRATIVE: CASE EVENT DATE: 201806
